FAERS Safety Report 6890519-6 (Version None)
Quarter: 2010Q3

REPORT INFORMATION
  Report Type: 
  Country: None (occurrence: None)
  Receive Date: 20100731
  Receipt Date: 20081125
  Transmission Date: 20110219
  Serious: No
  Sender: FDA-Public Use
  Company Number: US-PFIZER INC-2008088224

PATIENT
  Sex: Female
  Weight: 58.181 kg

DRUGS (2)
  1. LIPITOR [Suspect]
     Indication: BLOOD CHOLESTEROL INCREASED
     Route: 048
     Dates: start: 20080101
  2. CALCIUM [Concomitant]

REACTIONS (8)
  - ABDOMINAL DISTENSION [None]
  - BLADDER DISCOMFORT [None]
  - DISCOMFORT [None]
  - FLATULENCE [None]
  - GASTRIC DISORDER [None]
  - POLLAKIURIA [None]
  - UNEVALUABLE EVENT [None]
  - WRONG TECHNIQUE IN DRUG USAGE PROCESS [None]
